FAERS Safety Report 9350013 (Version 2)
Quarter: 2013Q3

REPORT INFORMATION
  Report Type: Spontaneous
  Country: US (occurrence: US)
  Receive Date: 20130614
  Receipt Date: 20130710
  Transmission Date: 20140515
  Serious: No
  Sender: FDA-Public Use
  Company Number: US-009507513-1306USA006728

PATIENT
  Sex: Male
  Weight: 91.16 kg

DRUGS (2)
  1. CLARITIN [Suspect]
     Indication: INFLUENZA
     Dosage: 10 MG, QD
     Route: 048
     Dates: end: 201305
  2. CLARITIN [Suspect]
     Indication: MEDICAL OBSERVATION

REACTIONS (3)
  - Somnolence [Not Recovered/Not Resolved]
  - Drug ineffective [Unknown]
  - Off label use [Unknown]
